FAERS Safety Report 7527566-7 (Version None)
Quarter: 2011Q2

REPORT INFORMATION
  Report Type: 
  Country: None (occurrence: None)
  Receive Date: 20110607
  Receipt Date: 20110531
  Transmission Date: 20111010
  Serious: No
  Sender: FDA-Public Use
  Company Number: US-PFIZER INC-2011119804

PATIENT
  Sex: Male
  Weight: 99.773 kg

DRUGS (2)
  1. ZYVOX [Suspect]
     Indication: STAPHYLOCOCCAL INFECTION
     Dosage: 600 MG, 2X/DAY
     Route: 048
     Dates: start: 20110526
  2. LORTAB [Concomitant]
     Indication: PAIN
     Dosage: 5/500
     Dates: end: 20110529

REACTIONS (1)
  - LETHARGY [None]
